FAERS Safety Report 19802693 (Version 4)
Quarter: 2022Q1

REPORT INFORMATION
  Report Type: Report from Study
  Country: PA (occurrence: PA)
  Receive Date: 20210908
  Receipt Date: 20220114
  Transmission Date: 20220423
  Serious: Yes (Disabling, Other)
  Sender: FDA-Public Use
  Company Number: PA-ABBVIE-21K-125-4068505-00

PATIENT
  Sex: Female
  Weight: 77 kg

DRUGS (1)
  1. HUMIRA [Suspect]
     Active Substance: ADALIMUMAB
     Indication: Ankylosing spondylitis
     Route: 058
     Dates: start: 20210406, end: 20210815

REACTIONS (14)
  - Cyanosis [Recovered/Resolved]
  - Face oedema [Recovered/Resolved]
  - Skin oedema [Recovered/Resolved]
  - Erythema [Recovered/Resolved]
  - Pruritus [Recovered/Resolved]
  - Tooth fracture [Recovering/Resolving]
  - Hepatic steatosis [Recovering/Resolving]
  - Pain [Recovering/Resolving]
  - Weight decreased [Recovering/Resolving]
  - Pulpitis dental [Recovering/Resolving]
  - Tooth abscess [Recovering/Resolving]
  - Psoriasis [Recovering/Resolving]
  - Pharyngitis [Recovering/Resolving]
  - Influenza [Recovering/Resolving]

NARRATIVE: CASE EVENT DATE: 20210101
